FAERS Safety Report 14155736 (Version 1)
Quarter: 2017Q4

REPORT INFORMATION
  Report Type: Report from Study
  Country: US (occurrence: US)
  Receive Date: 20171103
  Receipt Date: 20171103
  Transmission Date: 20180321
  Serious: Yes (Hospitalization)
  Sender: FDA-Public Use
  Company Number: US-ROCHE-1983868

PATIENT
  Age: 75 Year
  Sex: Male

DRUGS (5)
  1. BICALUTAMIDE. [Concomitant]
     Active Substance: BICALUTAMIDE
     Indication: CHEMOTHERAPY
     Route: 065
     Dates: start: 20171002
  2. ALECENSA [Suspect]
     Active Substance: ALECTINIB HYDROCHLORIDE
     Dosage: 3 CAPSULES 2 TIMES A DAY ONGOING:YES
     Route: 048
     Dates: start: 20170919
  3. ALECENSA [Suspect]
     Active Substance: ALECTINIB HYDROCHLORIDE
     Dosage: 4 CAPSULES 2 TIMES A DAY,ONGOING:NO
     Route: 048
     Dates: start: 201707, end: 20170905
  4. ALECENSA [Suspect]
     Active Substance: ALECTINIB HYDROCHLORIDE
     Indication: LUNG NEOPLASM MALIGNANT
     Dosage: 3 CAPSULES TWICE A DAY
     Route: 048
  5. ALECENSA [Suspect]
     Active Substance: ALECTINIB HYDROCHLORIDE
     Dosage: 2 CAPSULES TWICE A DAY
     Route: 048

REACTIONS (7)
  - Hip fracture [Recovered/Resolved]
  - Peripheral swelling [Unknown]
  - Fall [Unknown]
  - Gait disturbance [Unknown]
  - Femur fracture [Recovered/Resolved]
  - Joint swelling [Unknown]
  - Urinary retention [Unknown]

NARRATIVE: CASE EVENT DATE: 20170903
